FAERS Safety Report 14315126 (Version 1)
Quarter: 2017Q4

REPORT INFORMATION
  Report Type: Spontaneous
  Country: US (occurrence: US)
  Receive Date: 20171221
  Receipt Date: 20171221
  Transmission Date: 20180321
  Serious: Yes (Hospitalization, Other)
  Sender: FDA-Public Use
  Company Number: US-PFIZER INC-2017542783

PATIENT
  Sex: Male

DRUGS (1)
  1. FOSCARNET SODIUM. [Suspect]
     Active Substance: FOSCARNET SODIUM
     Dosage: UNK
     Dates: start: 201705

REACTIONS (4)
  - Cardiac failure congestive [Unknown]
  - Gait disturbance [Unknown]
  - Dyspnoea [Unknown]
  - Drug ineffective [Unknown]
